FAERS Safety Report 9342110 (Version 1)
Quarter: 2013Q2

REPORT INFORMATION
  Report Type: Spontaneous
  Country: GB (occurrence: None)
  Receive Date: 20130606
  Receipt Date: 20130606
  Transmission Date: 20140414
  Serious: Yes (Other)
  Sender: FDA-Public Use
  Company Number: GER/UKI/13/0029829

PATIENT
  Age: 5 Year
  Sex: Female

DRUGS (2)
  1. LEVETIRACETAM (LEVETIRACETAM) [Suspect]
     Indication: LENNOX-GASTAUT SYNDROME
  2. SODIUM VALPROATE (VALPROATE SODIUM) [Concomitant]

REACTIONS (2)
  - Epilepsy [None]
  - No therapeutic response [None]
